FAERS Safety Report 8607168-1 (Version None)
Quarter: 2012Q3

REPORT INFORMATION
  Report Type: 
  Country: None (occurrence: None)
  Receive Date: 20120821
  Receipt Date: 20120815
  Transmission Date: 20120928
  Serious: No
  Sender: FDA-Public Use
  Company Number: US-BIOGENIDEC-2012BI031450

PATIENT
  Age: 52 Year
  Sex: Female

DRUGS (1)
  1. TYSABRI [Suspect]
     Indication: MULTIPLE SCLEROSIS
     Route: 042
     Dates: start: 20110817, end: 20120723

REACTIONS (9)
  - TOOTH ABSCESS [None]
  - TOOTHACHE [None]
  - MALAISE [None]
  - SWELLING FACE [None]
  - TOOTH LOSS [None]
  - MULTIPLE SCLEROSIS [None]
  - COGNITIVE DISORDER [None]
  - PNEUMONIA [None]
  - RESPIRATORY TRACT CONGESTION [None]
